FAERS Safety Report 5876386-8 (Version None)
Quarter: 2008Q3

REPORT INFORMATION
  Report Type: 
  Country: None (occurrence: None)
  Receive Date: 20080909
  Receipt Date: 20080909
  Transmission Date: 20090109
  Serious: No
  Sender: FDA-Public Use
  Company Number: None

PATIENT
  Age: 73 Year
  Sex: Female
  Weight: 54.4316 kg

DRUGS (1)
  1. LYRICA [Suspect]
     Indication: FIBROMYALGIA
     Dosage: 1 DAILY PO
     Route: 048
     Dates: start: 20080815, end: 20080815

REACTIONS (3)
  - ABASIA [None]
  - DIZZINESS [None]
  - VISION BLURRED [None]
